FAERS Safety Report 11541342 (Version 1)
Quarter: 2015Q3

REPORT INFORMATION
  Report Type: Spontaneous
  Country: US (occurrence: US)
  Receive Date: 20150923
  Receipt Date: 20150923
  Transmission Date: 20151125
  Serious: No
  Sender: FDA-Public Use
  Company Number: US-KOWA-2014S1001111

PATIENT
  Age: 64 Year
  Sex: Female

DRUGS (3)
  1. SYNTHROID [Concomitant]
     Active Substance: LEVOTHYROXINE SODIUM
  2. LIVALO [Suspect]
     Active Substance: PITAVASTATIN CALCIUM
     Dosage: 2 MG, QD
     Route: 048
     Dates: start: 2013, end: 201403
  3. LIVALO [Suspect]
     Active Substance: PITAVASTATIN CALCIUM
     Dosage: 4 MG, QD
     Route: 048
     Dates: start: 201403, end: 201405

REACTIONS (1)
  - Arthralgia [Recovered/Resolved]

NARRATIVE: CASE EVENT DATE: 20140401
